FAERS Safety Report 19390821 (Version 1)
Quarter: 2021Q2

REPORT INFORMATION
  Report Type: Spontaneous
  Country: AU (occurrence: AU)
  Receive Date: 20210608
  Receipt Date: 20210608
  Transmission Date: 20210717
  Serious: Yes (Disabling, Other)
  Sender: FDA-Public Use
  Company Number: AU-ALLERGAN-2121175US

PATIENT
  Sex: Female

DRUGS (3)
  1. ASENAPINE MALEATE ? BP [Suspect]
     Active Substance: ASENAPINE MALEATE
     Indication: PSYCHOTIC DISORDER
     Dosage: 15 MG
     Route: 060
  2. ASENAPINE MALEATE ? BP [Suspect]
     Active Substance: ASENAPINE MALEATE
     Dosage: INCREASED STEP WISE TO A MAXIMUM DOSE OF 20 MG SL PER DAY
     Route: 060
  3. ASENAPINE MALEATE ? BP [Suspect]
     Active Substance: ASENAPINE MALEATE
     Dosage: UNK
     Route: 060

REACTIONS (7)
  - Apathy [Recovering/Resolving]
  - Product use complaint [Unknown]
  - Hallucination, auditory [Recovering/Resolving]
  - Disturbance in attention [Recovering/Resolving]
  - Off label use [Unknown]
  - Weight increased [Recovered/Resolved]
  - Hallucination, visual [Recovered/Resolved]
